FAERS Safety Report 23736439 (Version 2)
Quarter: 2024Q2

REPORT INFORMATION
  Report Type: Spontaneous
  Country: JP (occurrence: JP)
  Receive Date: 20240412
  Receipt Date: 20240429
  Transmission Date: 20240716
  Serious: Yes (Hospitalization, Other)
  Sender: FDA-Public Use
  Company Number: None

PATIENT

DRUGS (13)
  1. ESZOPICLONE [Suspect]
     Active Substance: ESZOPICLONE
     Indication: Product used for unknown indication
     Dosage: UNK
     Route: 065
  2. ESZOPICLONE [Suspect]
     Active Substance: ESZOPICLONE
     Dosage: UNK, FOR INSOMNIA AS NEEDED
     Route: 065
  3. OLANZAPINE [Suspect]
     Active Substance: OLANZAPINE
     Indication: Product used for unknown indication
     Dosage: UNK, BEFORE BEDTIME
     Route: 065
  4. QUETIAPINE [Suspect]
     Active Substance: QUETIAPINE
     Indication: Product used for unknown indication
     Dosage: QUETIAPINE TABLETS, 1 TABLET BEFORE BEDTIME
     Route: 065
  5. QUETIAPINE [Suspect]
     Active Substance: QUETIAPINE
     Dosage: 2 TABLETS AFTER BREAKFAST, AND LUNCH.
     Route: 065
  6. BROTIZOLAM [Suspect]
     Active Substance: BROTIZOLAM
     Indication: Product used for unknown indication
     Dosage: UNK, BEFORE BEDTIME
     Route: 065
  7. NITRAZEPAM [Suspect]
     Active Substance: NITRAZEPAM
     Indication: Product used for unknown indication
     Dosage: UNK
     Route: 065
  8. LITHIUM CARBONATE [Suspect]
     Active Substance: LITHIUM CARBONATE
     Indication: Product used for unknown indication
     Dosage: 3 DF, , 3 TABLETS AFTER BREAKFAST, LUNCH, AND DINNER
     Route: 065
  9. LITHIUM CARBONATE [Suspect]
     Active Substance: LITHIUM CARBONATE
     Dosage: 100 MILLIGRAM, AFTER DINNER (1 TABLET AFTER DINNER)
     Route: 065
  10. LORAZEPAM [Suspect]
     Active Substance: LORAZEPAM
     Indication: Insomnia
     Dosage: UNK
     Route: 065
  11. ZOPICLONE [Suspect]
     Active Substance: ZOPICLONE
     Indication: Product used for unknown indication
     Dosage: UNK
     Route: 065
  12. VALPROATE SODIUM [Concomitant]
     Active Substance: VALPROATE SODIUM
     Indication: Product used for unknown indication
     Dosage: 4 TABLETS AFTER BREAKFAST, LUNCH, AND DINNER
     Route: 065
  13. LANSOPRAZOLE [Concomitant]
     Active Substance: LANSOPRAZOLE
     Indication: Product used for unknown indication
     Dosage: AFTER BREAKFAST
     Route: 065

REACTIONS (5)
  - Pneumonia [Recovering/Resolving]
  - Foreign body aspiration [Recovering/Resolving]
  - Bronchial obstruction [Recovering/Resolving]
  - Somnolence [Recovering/Resolving]
  - Dysphagia [Recovering/Resolving]
